FAERS Safety Report 4855128-9 (Version None)
Quarter: 2005Q4

REPORT INFORMATION
  Report Type: 
  Country: None (occurrence: None)
  Receive Date: 20051125
  Receipt Date: 20050117
  Transmission Date: 20060501
  Serious: Yes (Other)
  Sender: FDA-Public Use
  Company Number: US-JNJFOC-20041001421

PATIENT
  Age: 48 Year
  Sex: Male
  Weight: 90.7194 kg

DRUGS (2)
  1. LEVAQUIN [Suspect]
     Indication: PNEUMONIA
     Dosage: 750 MG, ORAL
     Route: 048
  2. AVELOX (MOXIFLOXACIN HYDROCHLORIDE) SOLUTION [Concomitant]

REACTIONS (2)
  - MYOCLONIC EPILEPSY [None]
  - NIGHTMARE [None]
